FAERS Safety Report 13989845 (Version 1)
Quarter: 2017Q3

REPORT INFORMATION
  Report Type: Report from Study
  Country: NL (occurrence: NL)
  Receive Date: 20170920
  Receipt Date: 20170920
  Transmission Date: 20171128
  Serious: Yes (Other)
  Sender: FDA-Public Use
  Company Number: NL-AMGEN-NLDSL2017078371

PATIENT
  Age: 55 Year
  Sex: Female

DRUGS (1)
  1. REPATHA [Suspect]
     Active Substance: EVOLOCUMAB
     Indication: HYPERCHOLESTEROLAEMIA
     Dosage: 140 MG/ML, Q2WK
     Route: 058
     Dates: start: 20170421

REACTIONS (2)
  - Back pain [Recovering/Resolving]
  - Haematochezia [Unknown]

NARRATIVE: CASE EVENT DATE: 20170501
